FAERS Safety Report 4380796-8 (Version None)
Quarter: 2004Q2

REPORT INFORMATION
  Report Type: 
  Country: None (occurrence: None)
  Receive Date: 20040616
  Receipt Date: 20040608
  Transmission Date: 20050107
  Serious: Yes (Hospitalization)
  Sender: FDA-Public Use
  Company Number: 2004038487

PATIENT
  Age: 55 Year
  Sex: Female

DRUGS (6)
  1. LIPITOR [Suspect]
     Indication: ILL-DEFINED DISORDER
     Dosage: 10 MG (10 MG, 1 IN 1 D)
  2. BACTRIM [Concomitant]
  3. BI PREDONIUM  INDAPAMIDE, PERINDOPRIL ERBUMINE) [Concomitant]
  4. METFORMIN HCL [Concomitant]
  5. GLICLAZIDE (GLICLAZIDE) [Concomitant]
  6. ATENOLOL [Concomitant]

REACTIONS (3)
  - ALOPECIA [None]
  - LIVER ABSCESS [None]
  - SEPSIS [None]
